FAERS Safety Report 5207341-9 (Version None)
Quarter: 2007Q1

REPORT INFORMATION
  Report Type: 
  Country: None (occurrence: None)
  Receive Date: 20070110
  Receipt Date: 20061227
  Transmission Date: 20070707
  Serious: Yes (Hospitalization)
  Sender: FDA-Public Use
  Company Number: 2007US000025

PATIENT
  Age: 44 Year
  Sex: Male

DRUGS (1)
  1. AMEVIVE [Suspect]
     Indication: PSORIASIS
     Dosage: 15MG, WEEKLY, INTRAMUSCULAR
     Route: 030
     Dates: start: 20061214

REACTIONS (1)
  - INFLUENZA LIKE ILLNESS [None]
